FAERS Safety Report 5606529-2 (Version None)
Quarter: 2008Q1

REPORT INFORMATION
  Report Type: 
  Country: None (occurrence: None)
  Receive Date: 20080129
  Receipt Date: 20080125
  Transmission Date: 20080703
  Serious: Yes (Disabling)
  Sender: FDA-Public Use
  Company Number: B0505192A

PATIENT
  Age: 81 Year
  Sex: Female
  Weight: 54 kg

DRUGS (6)
  1. ROSIGLITAZONE [Suspect]
     Route: 048
     Dates: start: 20070319, end: 20071010
  2. GLICLAZIDE [Concomitant]
     Route: 048
     Dates: start: 20060301
  3. ASPIRIN [Concomitant]
     Indication: HYPERTENSION
     Route: 048
     Dates: start: 20041001
  4. SIMVASTATIN [Concomitant]
     Route: 048
     Dates: start: 20020601
  5. TRIMETHOPRIM [Concomitant]
     Dosage: 100MG PER DAY
     Route: 048
     Dates: start: 20050201
  6. LISINOPRIL [Concomitant]
     Indication: HYPERTENSION
     Route: 048
     Dates: start: 20060201

REACTIONS (2)
  - ANGINA PECTORIS [None]
  - PERIPHERAL VASCULAR DISORDER [None]
